FAERS Safety Report 23916511 (Version 1)
Quarter: 2024Q2

REPORT INFORMATION
  Report Type: Spontaneous
  Country: US (occurrence: None)
  Receive Date: 20240529
  Receipt Date: 20240529
  Transmission Date: 20240716
  Serious: Yes (Hospitalization)
  Sender: FDA-Public Use
  Company Number: None

PATIENT
  Age: 62 Year
  Sex: Female

DRUGS (1)
  1. CAPECITABINE [Suspect]
     Active Substance: CAPECITABINE
     Indication: Breast cancer female
     Dosage: FREQUENCY : TWICE A DAY;?

REACTIONS (8)
  - Dyspnoea [None]
  - Dizziness [None]
  - Syncope [None]
  - Brain neoplasm [None]
  - Therapy interrupted [None]
  - Dry skin [None]
  - Limb discomfort [None]
  - Xeroderma [None]
